FAERS Safety Report 18974162 (Version 1)
Quarter: 2021Q1

REPORT INFORMATION
  Report Type: Report from Study
  Country: US (occurrence: US)
  Receive Date: 20210305
  Receipt Date: 20210305
  Transmission Date: 20210420
  Serious: Yes (Hospitalization, Other)
  Sender: FDA-Public Use
  Company Number: US-JNJFOC-20210246427

PATIENT
  Age: 63 Year
  Sex: Female
  Weight: 62.7 kg

DRUGS (4)
  1. WARFARIN [Concomitant]
     Active Substance: WARFARIN
  2. SELEXIPAG [Suspect]
     Active Substance: SELEXIPAG
     Indication: PULMONARY ARTERIAL HYPERTENSION
     Route: 048
  3. ADCIRCA [Concomitant]
     Active Substance: TADALAFIL
  4. OPSUMIT [Concomitant]
     Active Substance: MACITENTAN

REACTIONS (2)
  - Cardiac failure congestive [Unknown]
  - Gastrointestinal disorder [Unknown]

NARRATIVE: CASE EVENT DATE: 20210218
